FAERS Safety Report 25299525 (Version 2)
Quarter: 2025Q2

REPORT INFORMATION
  Report Type: Report from Study
  Country: US (occurrence: US)
  Receive Date: 20250512
  Receipt Date: 20250515
  Transmission Date: 20250717
  Serious: Yes (Other)
  Sender: NOVARTIS
  Company Number: US-002147023-NVSC2024US226879

PATIENT
  Age: 53 Year
  Sex: Female

DRUGS (2)
  1. KESIMPTA [Suspect]
     Active Substance: OFATUMUMAB
     Indication: Multiple sclerosis
     Dosage: 20 MG, QMO
     Route: 058
     Dates: start: 20241115
  2. KESIMPTA [Suspect]
     Active Substance: OFATUMUMAB
     Route: 050

REACTIONS (15)
  - Progressive multiple sclerosis [Recovering/Resolving]
  - Immunodeficiency [Unknown]
  - Fall [Recovering/Resolving]
  - Disorientation [Unknown]
  - Head injury [Unknown]
  - Swelling face [Unknown]
  - Skin discolouration [Unknown]
  - Nasopharyngitis [Unknown]
  - Coordination abnormal [Not Recovered/Not Resolved]
  - Dyskinesia [Unknown]
  - Feeling abnormal [Unknown]
  - Movement disorder [Recovering/Resolving]
  - Arthropod bite [Not Recovered/Not Resolved]
  - Impaired healing [Unknown]
  - Scratch [Unknown]

NARRATIVE: CASE EVENT DATE: 20241125
